FAERS Safety Report 11107919 (Version 1)
Quarter: 2015Q2

REPORT INFORMATION
  Report Type: Spontaneous
  Country: US (occurrence: US)
  Receive Date: 20150512
  Receipt Date: 20150512
  Transmission Date: 20150821
  Serious: No
  Sender: FDA-Public Use
  Company Number: US-BAYER-2015-215699

PATIENT
  Age: 87 Year
  Sex: Female
  Weight: 68 kg

DRUGS (13)
  1. CALCIUM [Concomitant]
     Active Substance: CALCIUM
     Dosage: UNK
  2. CLARITIN REDITABS [Suspect]
     Active Substance: LORATADINE
     Indication: SEASONAL ALLERGY
     Dosage: 1 DF, QD
     Route: 048
     Dates: start: 20150429
  3. DOCUSATE SODIUM. [Concomitant]
     Active Substance: DOCUSATE SODIUM
     Dosage: UNK
  4. METOPROLOL TARTRATE. [Concomitant]
     Active Substance: METOPROLOL TARTRATE
     Dosage: UNK
  5. AMOXICILLIN. [Concomitant]
     Active Substance: AMOXICILLIN
     Dosage: UNK
  6. VITAMIN B12 [Concomitant]
     Active Substance: CYANOCOBALAMIN
     Dosage: UNK
  7. AMLODIPINE BESILATE [Concomitant]
     Active Substance: AMLODIPINE BESYLATE
     Dosage: UNK
  8. CLARITIN REDITABS [Suspect]
     Active Substance: LORATADINE
     Indication: SEASONAL ALLERGY
     Dosage: 2 DF, ONCE
     Route: 048
     Dates: start: 20150506, end: 20150506
  9. LOZOL [Concomitant]
     Active Substance: INDAPAMIDE
     Dosage: UNK
  10. CLONIDINE. [Concomitant]
     Active Substance: CLONIDINE
     Dosage: UNK
  11. XARELTO [Concomitant]
     Active Substance: RIVAROXABAN
     Dosage: UNK
  12. MICARDIS [Concomitant]
     Active Substance: TELMISARTAN
     Dosage: UNK
  13. DEXILANT [Concomitant]
     Active Substance: DEXLANSOPRAZOLE
     Dosage: UNK

REACTIONS (1)
  - Extra dose administered [Unknown]

NARRATIVE: CASE EVENT DATE: 20150506
